FAERS Safety Report 13521209 (Version 2)
Quarter: 2017Q2

REPORT INFORMATION
  Report Type: Spontaneous
  Country: ES (occurrence: ES)
  Receive Date: 20170508
  Receipt Date: 20170524
  Transmission Date: 20170830
  Serious: Yes (Hospitalization, Other)
  Sender: FDA-Public Use
  Company Number: ES-ACCORD-051122

PATIENT
  Age: 76 Year
  Sex: Female
  Weight: 81.2 kg

DRUGS (3)
  1. METHOTREXATE. [Suspect]
     Active Substance: METHOTREXATE
     Indication: RHEUMATOID ARTHRITIS
     Route: 058
  2. PREDNISONE. [Concomitant]
     Active Substance: PREDNISONE
     Indication: RHEUMATOID ARTHRITIS
     Dosage: INITIALLY RECEIVED 30 MG/DAY THEN DOSE REDUCED TO 15 MG/DAY FOR PRIMARY CARE.
  3. VARIVAX [Suspect]
     Active Substance: VARICELLA-ZOSTER VIRUS STRAIN OKA/MERCK LIVE ANTIGEN
     Indication: PRODUCT USED FOR UNKNOWN INDICATION
     Dosage: ATTENUATED LIVE-VIRUS VACCINE

REACTIONS (3)
  - Vaccinia virus infection [Recovered/Resolved]
  - Toxicity to various agents [Unknown]
  - Pancytopenia [Unknown]
